FAERS Safety Report 4964553-7 (Version None)
Quarter: 2006Q2

REPORT INFORMATION
  Report Type: 
  Country: None (occurrence: None)
  Receive Date: 20060406
  Receipt Date: 20060323
  Transmission Date: 20061013
  Serious: Yes (Other)
  Sender: FDA-Public Use
  Company Number: GB-GLAXOSMITHKLINE-B0417256A

PATIENT
  Age: 42 Year

DRUGS (2)
  1. ZYBAN [Suspect]
     Route: 048
  2. ALCOHOL [Suspect]

REACTIONS (7)
  - AGGRESSION [None]
  - AMNESIA [None]
  - CEREBROVASCULAR ACCIDENT [None]
  - COORDINATION ABNORMAL [None]
  - DEPRESSED MOOD [None]
  - DYSLEXIA [None]
  - MEMORY IMPAIRMENT [None]
